FAERS Safety Report 25003482 (Version 2)
Quarter: 2025Q1

REPORT INFORMATION
  Report Type: Spontaneous
  Country: CA (occurrence: None)
  Receive Date: 20250224
  Receipt Date: 20250304
  Transmission Date: 20250408
  Serious: Yes (Hospitalization)
  Sender: ORION
  Company Number: CA-PFIZER INC-202500019059

PATIENT
  Age: 75 Year
  Sex: Male

DRUGS (3)
  1. METHOTREXATE [Suspect]
     Active Substance: METHOTREXATE
     Indication: Rheumatoid arthritis
  2. FOLIC ACID [Concomitant]
     Active Substance: FOLIC ACID
  3. HYDROXYCHLOROQUINE [Concomitant]
     Active Substance: HYDROXYCHLOROQUINE

REACTIONS (8)
  - Chest pain [Not Recovered/Not Resolved]
  - Brain neoplasm [Unknown]
  - Dementia Alzheimer^s type [Unknown]
  - Rheumatoid arthritis [Unknown]
  - Ulcer haemorrhage [Unknown]
  - Anaemia [Unknown]
  - C-reactive protein increased [Unknown]
  - White blood cell count increased [Unknown]

NARRATIVE: CASE EVENT DATE: 20250101
